FAERS Safety Report 6821413-4 (Version None)
Quarter: 2010Q3

REPORT INFORMATION
  Report Type: 
  Country: None (occurrence: None)
  Receive Date: 20100707
  Receipt Date: 20081110
  Transmission Date: 20110219
  Serious: No
  Sender: FDA-Public Use
  Company Number: US-PFIZER INC-2008082809

PATIENT
  Sex: Female

DRUGS (1)
  1. ZOLOFT [Suspect]
     Indication: ADJUSTMENT DISORDER
     Dates: start: 20060101

REACTIONS (3)
  - AGITATION [None]
  - ENURESIS [None]
  - INSOMNIA [None]
